FAERS Safety Report 7513889-4 (Version None)
Quarter: 2011Q2

REPORT INFORMATION
  Report Type: 
  Country: None (occurrence: None)
  Receive Date: 20110531
  Receipt Date: 20110517
  Transmission Date: 20111010
  Serious: Yes (Other)
  Sender: FDA-Public Use
  Company Number: PHHY2011CA31324

PATIENT
  Sex: Female

DRUGS (1)
  1. SANDOSTATIN LAR [Suspect]
     Indication: PANCREATITIS CHRONIC
     Dosage: 40 MG, QMO
     Route: 030
     Dates: start: 20060601

REACTIONS (6)
  - HYPERHIDROSIS [None]
  - ERYTHEMA [None]
  - VOMITING [None]
  - PALPITATIONS [None]
  - MALAISE [None]
  - DIARRHOEA [None]
